FAERS Safety Report 7057303-4 (Version None)
Quarter: 2010Q4

REPORT INFORMATION
  Report Type: 
  Country: None (occurrence: None)
  Receive Date: 20101022
  Receipt Date: 20101019
  Transmission Date: 20110411
  Serious: Yes (Hospitalization)
  Sender: FDA-Public Use
  Company Number: DE-BRISTOL-MYERS SQUIBB COMPANY-15340920

PATIENT
  Age: 41 Year
  Sex: Female

DRUGS (1)
  1. ABILIFY [Suspect]
     Indication: AFFECTIVE DISORDER
     Dosage: INITIATED AT 5MG AND INCREASED TO 10 MG, REDUCED TO 5MG
     Dates: start: 20101001

REACTIONS (2)
  - IMPULSIVE BEHAVIOUR [None]
  - RESTLESSNESS [None]
